FAERS Safety Report 10260170 (Version 1)
Quarter: 2014Q2

REPORT INFORMATION
  Report Type: Spontaneous
  Country: US (occurrence: US)
  Receive Date: 20140625
  Receipt Date: 20140625
  Transmission Date: 20141212
  Serious: No
  Sender: FDA-Public Use
  Company Number: US-GILEAD-2014-0106402

PATIENT
  Age: 66 Year
  Sex: Male
  Weight: 84.35 kg

DRUGS (20)
  1. SOVALDI [Suspect]
     Indication: HEPATITIS C
     Dosage: UNK
     Route: 065
  2. SIMEPREVIR [Suspect]
     Indication: HEPATITIS C
     Dosage: 150 MG, QD
     Route: 048
     Dates: start: 201405
  3. CITALOPRAM [Concomitant]
  4. BUPROPION [Concomitant]
     Dosage: UNK
  5. TRAMADOL [Concomitant]
     Dosage: UNK
  6. CYCLOBENZAPRINE [Concomitant]
     Dosage: UNK
  7. ASPIRIN [Concomitant]
     Dosage: UNK
  8. MULTIVITAMINS [Concomitant]
     Dosage: UNK
  9. GINSENG                            /01384001/ [Concomitant]
     Dosage: UNK
  10. VITAMIN D                          /00107901/ [Concomitant]
     Dosage: UNK
  11. CALCIUM CITRATE [Concomitant]
     Dosage: UNK
  12. OMEGA 3 FISH OIL                   /01334101/ [Concomitant]
     Dosage: UNK
  13. SILYBUM MARIANUM [Concomitant]
  14. ZINC [Concomitant]
     Dosage: UNK
  15. SELENIUM [Concomitant]
     Dosage: UNK
  16. GLUCOSAMINE [Concomitant]
     Dosage: UNK
  17. CHONDROITIN [Concomitant]
     Dosage: UNK
  18. ECHINACEA WITH GOLDENSEAL [Concomitant]
     Dosage: UNK
  19. VITAMIN C                          /00008001/ [Concomitant]
     Dosage: UNK
  20. TOCOPHEROL [Concomitant]
     Dosage: UNK

REACTIONS (3)
  - Unevaluable event [Not Recovered/Not Resolved]
  - Off label use [Not Recovered/Not Resolved]
  - Fatigue [Not Recovered/Not Resolved]
